FAERS Safety Report 11693307 (Version 1)
Quarter: 2015Q4

REPORT INFORMATION
  Report Type: Report from Study
  Country: US (occurrence: US)
  Receive Date: 20151103
  Receipt Date: 20151103
  Transmission Date: 20160304
  Serious: Yes (Other)
  Sender: FDA-Public Use
  Company Number: US-NOVOPROD-468784

PATIENT
  Age: 4 Year
  Sex: Male
  Weight: 18 kg

DRUGS (3)
  1. NORDITROPIN [Suspect]
     Active Substance: SOMATROPIN
     Indication: HYPOPITUITARISM
     Dosage: 0.5 MG, QD AT NIGHTTIME
     Route: 058
     Dates: start: 20151005, end: 20151014
  2. SYNTHROID [Concomitant]
     Active Substance: LEVOTHYROXINE SODIUM
     Indication: HYPOTHYROIDISM
  3. NORDITROPIN [Suspect]
     Active Substance: SOMATROPIN
     Indication: OFF LABEL USE

REACTIONS (4)
  - Nausea [Recovered/Resolved]
  - Headache [Recovering/Resolving]
  - Papilloedema [Recovering/Resolving]
  - Off label use [Recovered/Resolved]

NARRATIVE: CASE EVENT DATE: 20151005
